FAERS Safety Report 8838636 (Version 1)
Quarter: 2012Q4

REPORT INFORMATION
  Report Type: 
  Country: US (occurrence: US)
  Receive Date: 20121012
  Receipt Date: 20121012
  Transmission Date: 20130627
  Serious: No
  Sender: FDA-Public Use
  Company Number: US-009507513-1210USA004777

PATIENT
  Sex: Female

DRUGS (3)
  1. VYTORIN [Suspect]
     Indication: BLOOD CHOLESTEROL INCREASED
     Dosage: 10/40 mg, UNK
     Route: 048
     Dates: start: 201204
  2. VYTORIN [Suspect]
     Dosage: 10/80 mg, UNK
     Route: 048
     Dates: start: 2007, end: 201204
  3. ZOCOR [Concomitant]
     Route: 048

REACTIONS (1)
  - Drug ineffective [Unknown]
